FAERS Safety Report 7117386-X (Version None)
Quarter: 2010Q4

REPORT INFORMATION
  Report Type: 
  Country: None (occurrence: None)
  Receive Date: 20101122
  Receipt Date: 20101116
  Transmission Date: 20110411
  Serious: Yes (Other)
  Sender: FDA-Public Use
  Company Number: SE-PFIZER INC-2010125784

PATIENT
  Age: 30 Year
  Sex: Female

DRUGS (4)
  1. LYRICA [Suspect]
     Indication: PAIN
     Dosage: 50 MG, 2X/DAY
     Route: 048
     Dates: start: 20090101, end: 20091001
  2. LYRICA [Suspect]
     Indication: PANIC ATTACK
     Dosage: 75 MG, 2X/DAY
     Route: 048
     Dates: start: 20091001, end: 20091001
  3. SALAZOPYRIN [Concomitant]
     Dosage: UNK
     Dates: end: 20091001
  4. FLUOXETINE [Concomitant]
     Dosage: 20 MG, 1X/DAY
     Dates: start: 20090101

REACTIONS (3)
  - DYSARTHRIA [None]
  - DYSPHEMIA [None]
  - DYSPROSODY [None]
